FAERS Safety Report 7073615-2 (Version None)
Quarter: 2010Q4

REPORT INFORMATION
  Report Type: 
  Country: None (occurrence: None)
  Receive Date: 20101029
  Receipt Date: 20100719
  Transmission Date: 20110411
  Serious: No
  Sender: FDA-Public Use
  Company Number: A0871145A

PATIENT
  Sex: Female

DRUGS (7)
  1. ADVAIR DISKUS 100/50 [Suspect]
     Indication: ASTHMA
     Dosage: 1PUFF PER DAY
     Route: 055
  2. ADVAIR DISKUS 100/50 [Suspect]
     Dosage: 1PUFF PER DAY
     Route: 055
  3. ZOCOR [Concomitant]
  4. SYNTHROID [Concomitant]
  5. NEXIUM [Concomitant]
  6. ZESTRIL [Concomitant]
  7. NEURONTIN [Concomitant]

REACTIONS (2)
  - DYSPHONIA [None]
  - OROPHARYNGEAL DISCOMFORT [None]
